FAERS Safety Report 8839375 (Version 1)
Quarter: 2012Q4

REPORT INFORMATION
  Report Type: 
  Country: None (occurrence: DE)
  Receive Date: 20121015
  Receipt Date: 20121015
  Transmission Date: 20130627
  Serious: Yes (Other)
  Sender: FDA-Public Use
  Company Number: DE-ACCORD-014918

PATIENT

DRUGS (1)
  1. TACROLIMUS [Suspect]
     Route: 064

REACTIONS (3)
  - Cytomegalovirus infection [Unknown]
  - Premature baby [Unknown]
  - Foetal exposure during pregnancy [Unknown]
